FAERS Safety Report 6159251-0 (Version None)
Quarter: 2009Q2

REPORT INFORMATION
  Report Type: 
  Country: None (occurrence: None)
  Receive Date: 20090417
  Receipt Date: 20090415
  Transmission Date: 20091009
  Serious: Yes (Hospitalization)
  Sender: FDA-Public Use
  Company Number: CA-ASTRAZENECA-2009UW07798

PATIENT
  Sex: Male

DRUGS (3)
  1. CRESTOR [Suspect]
     Indication: LDL/HDL RATIO INCREASED
     Route: 048
     Dates: start: 20090218, end: 20090227
  2. WELLBUTRIN [Concomitant]
     Indication: MAJOR DEPRESSION
     Route: 048
  3. RISPERDAL [Concomitant]
     Indication: MAJOR DEPRESSION
     Route: 048

REACTIONS (4)
  - HYPOAESTHESIA [None]
  - INSOMNIA [None]
  - MYALGIA [None]
  - PAIN IN EXTREMITY [None]
